FAERS Safety Report 6303915-2 (Version None)
Quarter: 2009Q3

REPORT INFORMATION
  Report Type: 
  Country: None (occurrence: None)
  Receive Date: 20090805
  Receipt Date: 20090729
  Transmission Date: 20100115
  Serious: Yes (Death, Life-Threatening, Other)
  Sender: FDA-Public Use
  Company Number: 2009JP004138

PATIENT
  Age: 72 Year
  Sex: Female

DRUGS (2)
  1. FUNGUARD(MICAFUNGIN) INJECTION [Suspect]
     Indication: FUNGAL INFECTION
     Dosage: 75 MG, IV DRIP
     Route: 041
     Dates: start: 20090612, end: 20090615
  2. FUNGUARD(MICAFUNGIN) INJECTION [Suspect]
     Indication: FUNGAL INFECTION
     Dosage: 75 MG, IV DRIP
     Route: 041
     Dates: start: 20090619, end: 20090619

REACTIONS (2)
  - HAEMOLYSIS [None]
  - LIVER DISORDER [None]
